FAERS Safety Report 14908948 (Version 1)
Quarter: 2018Q2

REPORT INFORMATION
  Report Type: Spontaneous
  Country: US (occurrence: US)
  Receive Date: 20180430
  Receipt Date: 20180430
  Transmission Date: 20180711
  Serious: No
  Sender: FDA-Public Use
  Company Number: None

PATIENT
  Age: 41 Year
  Sex: Female
  Weight: 63.5 kg

DRUGS (1)
  1. PARAGARD T 380A [Suspect]
     Active Substance: COPPER
     Dates: start: 20130524, end: 20180411

REACTIONS (8)
  - Migraine [None]
  - Vision blurred [None]
  - Back pain [None]
  - Paraesthesia [None]
  - Immobile [None]
  - Loss of consciousness [None]
  - Vertigo [None]
  - Hypoaesthesia [None]

NARRATIVE: CASE EVENT DATE: 20180411
